FAERS Safety Report 9029295 (Version 1)
Quarter: 2013Q1

REPORT INFORMATION
  Report Type: Spontaneous
  Country: JP (occurrence: JP)
  Receive Date: 20130125
  Receipt Date: 20130125
  Transmission Date: 20140127
  Serious: Yes (Hospitalization)
  Sender: FDA-Public Use
  Company Number: JP-BAYER-2012-129965

PATIENT
  Age: 19 Year
  Sex: Male
  Weight: 59 kg

DRUGS (14)
  1. KOGENATE FS [Suspect]
     Indication: FACTOR VIII DEFICIENCY
     Dosage: DAILY DOSE 2000 IU
     Route: 042
     Dates: start: 20110818, end: 20120104
  2. KOGENATE FS [Suspect]
     Indication: FACTOR VIII DEFICIENCY
     Dosage: 2000 IU, TIW
     Route: 042
     Dates: start: 20120127, end: 20120604
  3. KOGENATE FS [Suspect]
     Indication: FACTOR VIII DEFICIENCY
     Dosage: 2000 IU, TIW
     Route: 042
     Dates: start: 20120606, end: 20120720
  4. KOGENATE FS [Suspect]
     Indication: FACTOR VIII DEFICIENCY
     Dosage: 2000 IU, PRN
     Route: 042
     Dates: start: 20120723, end: 20120723
  5. KOGENATE FS [Suspect]
     Indication: FACTOR VIII DEFICIENCY
     Dosage: 2000 IU, TIW
     Route: 042
     Dates: start: 20120803, end: 20121018
  6. KOGENATE FS [Suspect]
     Indication: FACTOR VIII DEFICIENCY
     Dosage: 2000 IU, TIW
     Route: 042
     Dates: start: 20121020, end: 20121110
  7. KOGENATE FS [Suspect]
     Indication: FACTOR VIII DEFICIENCY
     Dosage: 2000 IU, PRN
     Route: 042
     Dates: start: 20121112, end: 20121114
  8. KOGENATE FS [Suspect]
     Indication: FACTOR VIII DEFICIENCY
     Dosage: 2000 IU, BID
     Route: 042
     Dates: start: 20121114, end: 20121116
  9. KOGENATE FS [Suspect]
     Indication: FACTOR VIII DEFICIENCY
     Dosage: 2000 IU, QD
     Route: 042
     Dates: start: 20121117, end: 20121119
  10. KOGENATE FS [Suspect]
     Indication: FACTOR VIII DEFICIENCY
     Dosage: 4000 IU, QD
     Route: 042
     Dates: start: 20121120, end: 20121120
  11. KOGENATE FS [Suspect]
     Indication: FACTOR VIII DEFICIENCY
     Dosage: 2000 IU, TIW
     Route: 042
     Dates: start: 20120106, end: 20120125
  12. KOGENATE FS [Suspect]
     Indication: FACTOR VIII DEFICIENCY
     Dosage: DAILY DOSE 2000 IU
     Route: 042
     Dates: start: 20120725, end: 20120730
  13. KOGENATE FS [Suspect]
     Indication: FACTOR VIII DEFICIENCY
     Dosage: DAILY DOSE 2000 IU
     Route: 042
     Dates: start: 20120801, end: 20120801
  14. XYZAL [Concomitant]
     Indication: RHINITIS ALLERGIC
     Dosage: DAILY DOSE 5 MG
     Route: 048
     Dates: start: 20120210

REACTIONS (3)
  - Anti factor VIII antibody positive [Not Recovered/Not Resolved]
  - Renal haemorrhage [Recovered/Resolved]
  - Muscle haemorrhage [Recovered/Resolved]
